FAERS Safety Report 9013287 (Version 1)
Quarter: 2013Q1

REPORT INFORMATION
  Report Type: Spontaneous
  Country: US (occurrence: None)
  Receive Date: 20130107
  Receipt Date: 20130107
  Transmission Date: 20140127
  Serious: Yes (Life-Threatening, Other)
  Sender: FDA-Public Use
  Company Number: None

PATIENT
  Age: 16 Year
  Sex: Male
  Weight: 74.84 kg

DRUGS (1)
  1. ISOTRETINOIN [Suspect]
     Route: 048
     Dates: start: 20120915, end: 20121231

REACTIONS (7)
  - Mood altered [None]
  - Aggression [None]
  - Depression [None]
  - Psychotic disorder [None]
  - Aggression [None]
  - Alcohol use [None]
  - Homicidal ideation [None]
